FAERS Safety Report 13897730 (Version 2)
Quarter: 2017Q3

REPORT INFORMATION
  Report Type: Spontaneous
  Country: US (occurrence: US)
  Receive Date: 20170823
  Receipt Date: 20170905
  Transmission Date: 20171127
  Serious: No
  Sender: FDA-Public Use
  Company Number: US-PFIZER INC-2017364587

PATIENT
  Age: 85 Year
  Sex: Female

DRUGS (4)
  1. LORAZEPAM. [Suspect]
     Active Substance: LORAZEPAM
     Dosage: UNK
  2. LORAZEPAM. [Suspect]
     Active Substance: LORAZEPAM
     Indication: INSOMNIA
     Dosage: 1 DF, AS NEEDED, ^EVERY 6 HOURS^
  3. GABAPENTIN. [Concomitant]
     Active Substance: GABAPENTIN
     Dosage: 700 MG, DAILY, ^TWO CAPSULES, IN THE MORNING, AT LUNCH, AND DINNER, AND ONE AT BEDTIME^
  4. GABAPENTIN. [Concomitant]
     Active Substance: GABAPENTIN
     Indication: NEUROPATHY PERIPHERAL
     Dosage: 1100 MG, DAILY, ^3 CAPSULES FOR BREAKFAST, LUNCH, AND SUPPER AND TAKE TWO 100MG CAPSULES AT NIGHT^
     Route: 048

REACTIONS (1)
  - Drug ineffective [Unknown]
